FAERS Safety Report 5259125-3 (Version None)
Quarter: 2007Q1

REPORT INFORMATION
  Report Type: 
  Country: None (occurrence: None)
  Receive Date: 20070308
  Receipt Date: 20070224
  Transmission Date: 20070707
  Serious: Yes (Other)
  Sender: FDA-Public Use
  Company Number: GB-PFIZER INC-2007006625

PATIENT
  Age: 77 Year
  Sex: Male
  Weight: 73 kg

DRUGS (18)
  1. LINEZOLID [Suspect]
     Indication: STAPHYLOCOCCAL INFECTION
     Route: 042
     Dates: start: 20050104, end: 20050120
  2. PANTOPRAZOLE SODIUM [Suspect]
     Indication: PROPHYLAXIS
     Route: 042
     Dates: start: 20050102, end: 20050127
  3. PANTOPRAZOLE SODIUM [Suspect]
     Indication: STRESS ULCER
  4. ZOTON [Suspect]
     Indication: PROPHYLAXIS
     Route: 048
     Dates: start: 20050127, end: 20050201
  5. ZOTON [Suspect]
     Indication: STRESS ULCER
  6. AMIODARONE HYDROCHLORIDE [Concomitant]
     Indication: ATRIAL FIBRILLATION
     Dosage: DAILY DOSE:600MG
     Dates: start: 20050102, end: 20050106
  7. FLUCLOXACILLIN [Concomitant]
     Indication: STAPHYLOCOCCAL INFECTION
     Dates: start: 20041231, end: 20050104
  8. HEPARIN [Concomitant]
     Indication: DEEP VEIN THROMBOSIS
     Route: 042
     Dates: start: 20041228
  9. HEPARIN [Concomitant]
     Indication: PROPHYLAXIS
  10. INSULIN [Concomitant]
     Indication: HYPERGLYCAEMIA
     Route: 042
  11. TAZOCIN [Concomitant]
     Indication: GASTROINTESTINAL CARCINOMA
     Dates: start: 20041231, end: 20050104
  12. TAZOCIN [Concomitant]
     Indication: PERITONITIS
  13. TEICOPLANIN [Concomitant]
     Indication: STAPHYLOCOCCAL INFECTION
     Dosage: DAILY DOSE:400MG
     Dates: start: 20041231, end: 20050104
  14. ALFENTANIL [Concomitant]
     Indication: SEDATION
     Dates: start: 20050102, end: 20050124
  15. METOCLOPRAMIDE [Concomitant]
     Indication: GASTROENTERITIS VIRAL
     Dates: start: 20041224, end: 20050101
  16. NOREPINEPHRINE BITARTRATE [Concomitant]
     Dates: start: 20050102, end: 20050111
  17. PROPOFOL [Concomitant]
     Indication: SEDATION
     Dates: start: 20050102, end: 20050105
  18. FUROSEMIDE [Concomitant]
     Indication: POLYURIA
     Route: 042

REACTIONS (5)
  - ALANINE AMINOTRANSFERASE INCREASED [None]
  - BLOOD ALKALINE PHOSPHATASE INCREASED [None]
  - BLOOD BILIRUBIN INCREASED [None]
  - LIVER FUNCTION TEST ABNORMAL [None]
  - RENAL FAILURE ACUTE [None]
